FAERS Safety Report 21418134 (Version 1)
Quarter: 2022Q4

REPORT INFORMATION
  Report Type: Spontaneous
  Country: US (occurrence: None)
  Receive Date: 20221005
  Receipt Date: 20221005
  Transmission Date: 20230112
  Serious: Yes (Hospitalization)
  Sender: FDA-Public Use
  Company Number: None

PATIENT
  Age: 84 Year
  Sex: Female

DRUGS (14)
  1. AMBRISENTAN [Suspect]
     Active Substance: AMBRISENTAN
     Indication: Pulmonary hypertension
     Dosage: FREQUENCY : DAILY;?
     Route: 048
     Dates: start: 20180216
  2. TADALAFIL [Concomitant]
     Active Substance: TADALAFIL
  3. LISINOPRIL [Concomitant]
  4. METOPROLOL [Concomitant]
     Active Substance: METOPROLOL
  5. ALENDRONATE [Concomitant]
  6. DILTIAZEM [Concomitant]
  7. COSOPT OPHT DROP [Concomitant]
  8. ALPHAGAN OPHT DROP [Concomitant]
  9. CYCLOSPORINE OPHT DROP [Concomitant]
  10. FUROSEMIDE [Concomitant]
  11. VITAMIN D3 [Concomitant]
  12. FAMOTIDINE [Concomitant]
  13. OMEPRAZOLE [Concomitant]
  14. GLUCOSAMINE-CHONDROITIN [Concomitant]

REACTIONS (2)
  - Sepsis [None]
  - Cholangitis acute [None]

NARRATIVE: CASE EVENT DATE: 20220905
